FAERS Safety Report 5131318-5 (Version None)
Quarter: 2006Q4

REPORT INFORMATION
  Report Type: 
  Country: None (occurrence: None)
  Receive Date: 20061020
  Receipt Date: 20061012
  Transmission Date: 20070319
  Serious: Yes (Other)
  Sender: FDA-Public Use
  Company Number: PHEH2006US12939

PATIENT

DRUGS (7)
  1. ZELNORM [Suspect]
     Indication: IRRITABLE BOWEL SYNDROME
     Dosage: 1/2 A 6 MG TABLET QD
     Route: 048
     Dates: start: 20060901, end: 20060901
  2. ZELNORM [Suspect]
     Dosage: 6 MG, QD
     Route: 048
     Dates: start: 20060901
  3. PEPTO-BISMOL [Concomitant]
     Dosage: UNK, PRN
  4. GAS-X [Concomitant]
     Dosage: UNK, PRN
  5. BENEFIBER [Concomitant]
  6. COUMADIN [Concomitant]
     Indication: CARDIAC DISORDER
     Dates: start: 20030101
  7. TOPROL-XL [Concomitant]

REACTIONS (1)
  - RECTAL HAEMORRHAGE [None]
